FAERS Safety Report 13976889 (Version 1)
Quarter: 2017Q3

REPORT INFORMATION
  Report Type: Spontaneous
  Country: US (occurrence: US)
  Receive Date: 20170915
  Receipt Date: 20170915
  Transmission Date: 20171128
  Serious: No
  Sender: FDA-Public Use
  Company Number: US-ROCHE-696036

PATIENT
  Sex: Female

DRUGS (3)
  1. TAXOTERE [Concomitant]
     Active Substance: DOCETAXEL
     Dosage: STOPPED 6 WEEKS AGO
     Route: 065
  2. CARBOPLATIN. [Concomitant]
     Active Substance: CARBOPLATIN
     Dosage: STOPPED 6 WEEKS AGO
     Route: 065
  3. HERCEPTIN [Suspect]
     Active Substance: TRASTUZUMAB
     Indication: BREAST CANCER STAGE I
     Route: 065

REACTIONS (4)
  - Diastolic dysfunction [Unknown]
  - Nasopharyngitis [Unknown]
  - Muscle spasms [Unknown]
  - Myalgia [Unknown]
